FAERS Safety Report 5736443-3 (Version None)
Quarter: 2008Q2

REPORT INFORMATION
  Report Type: 
  Country: None (occurrence: None)
  Receive Date: 20080513
  Receipt Date: 20080512
  Transmission Date: 20081010
  Serious: Yes (Death)
  Sender: FDA-Public Use
  Company Number: B0519797A

PATIENT
  Age: 65 Year
  Sex: Male

DRUGS (7)
  1. ZANTAC [Suspect]
     Indication: DRUG USE FOR UNKNOWN INDICATION
     Route: 048
  2. AMARYL [Concomitant]
     Route: 048
  3. BRUFEN [Concomitant]
     Route: 048
  4. FLOMOX [Concomitant]
     Route: 048
  5. CALONAL [Concomitant]
     Route: 065
  6. CONIEL [Concomitant]
     Route: 048
  7. MELBIN [Concomitant]
     Route: 048

REACTIONS (3)
  - CARDIAC FAILURE [None]
  - LIVER DISORDER [None]
  - RENAL DISORDER [None]
